FAERS Safety Report 7712008-9 (Version None)
Quarter: 2011Q3

REPORT INFORMATION
  Report Type: 
  Country: None (occurrence: None)
  Receive Date: 20110826
  Receipt Date: 20110824
  Transmission Date: 20111222
  Serious: Yes (Other)
  Sender: FDA-Public Use
  Company Number: US-PFIZER INC-2011196674

PATIENT
  Sex: Male
  Weight: 24.943 kg

DRUGS (1)
  1. CHILDREN'S ADVIL [Suspect]
     Indication: HEADACHE
     Dosage: TWO TEASPOONS DAILY
     Route: 048
     Dates: start: 20110821, end: 20110822

REACTIONS (1)
  - LIP SWELLING [None]
